FAERS Safety Report 8208416-2 (Version None)
Quarter: 2012Q1

REPORT INFORMATION
  Report Type: 
  Country: None (occurrence: None)
  Receive Date: 20120314
  Receipt Date: 20120307
  Transmission Date: 20120608
  Serious: Yes (Other)
  Sender: FDA-Public Use
  Company Number: US-ELI_LILLY_AND_COMPANY-US201203002347

PATIENT
  Sex: Male

DRUGS (2)
  1. EFFIENT [Suspect]
     Dosage: 10 MG
  2. EFFIENT [Suspect]
     Indication: STENT PLACEMENT
     Dosage: LOADING DOSE

REACTIONS (2)
  - DRUG DOSE OMISSION [None]
  - THROMBOSIS IN DEVICE [None]
